FAERS Safety Report 5252710-4 (Version None)
Quarter: 2007Q1

REPORT INFORMATION
  Report Type: 
  Country: None (occurrence: None)
  Receive Date: 20070301
  Receipt Date: 20061114
  Transmission Date: 20070707
  Serious: No
  Sender: FDA-Public Use
  Company Number: US-GLAXOSMITHKLINE-A0627478A

PATIENT
  Age: 27 Year
  Sex: Female

DRUGS (5)
  1. LAMICTAL [Suspect]
     Indication: BIPOLAR DISORDER
     Route: 048
     Dates: start: 20050809
  2. GEODON [Suspect]
     Dosage: 20MG TWICE PER DAY
     Dates: start: 20061104
  3. SEROQUEL [Suspect]
     Dates: start: 20050729, end: 20061103
  4. PROZAC [Concomitant]
  5. RITALIN [Concomitant]

REACTIONS (3)
  - DISSOCIATION [None]
  - DIZZINESS [None]
  - TREMOR [None]
